FAERS Safety Report 18849461 (Version 1)
Quarter: 2021Q1

REPORT INFORMATION
  Report Type: Spontaneous
  Country: US (occurrence: US)
  Receive Date: 20210204
  Receipt Date: 20210204
  Transmission Date: 20210419
  Serious: Yes (Other)
  Sender: FDA-Public Use
  Company Number: US-PAIPHARMA-2021-US-000607

PATIENT
  Age: 67 Year
  Sex: Female

DRUGS (6)
  1. LEUCOVORIN. [Concomitant]
     Active Substance: LEUCOVORIN
     Dosage: 50 MG EVERY 6 HOURS
  2. DEXAMETHASONE. [Concomitant]
     Active Substance: DEXAMETHASONE
  3. METHOTREXATE. [Suspect]
     Active Substance: METHOTREXATE
     Indication: DIFFUSE LARGE B-CELL LYMPHOMA
     Dosage: 4271 MG/SQUARE?METER
  4. TEMOZOLOMIDE. [Concomitant]
     Active Substance: TEMOZOLOMIDE
     Dosage: 150 MG/SQUARE?METER
  5. RITUXIMAB. [Concomitant]
     Active Substance: RITUXIMAB
     Dosage: 500 MG/SQUARE?METER
  6. LEVETIRACETAM (NON?SPECIFIC) [Suspect]
     Active Substance: LEVETIRACETAM
     Indication: CENTRAL NERVOUS SYSTEM LESION

REACTIONS (3)
  - Drug interaction [Unknown]
  - Toxicity to various agents [Unknown]
  - Acute kidney injury [Unknown]
